FAERS Safety Report 9981235 (Version 1)
Quarter: 2014Q1

REPORT INFORMATION
  Report Type: Spontaneous
  Country: US (occurrence: None)
  Receive Date: 20140306
  Receipt Date: 20140306
  Transmission Date: 20141002
  Serious: Yes (Disabling)
  Sender: FDA-Public Use
  Company Number: None

PATIENT
  Age: 61 Year
  Sex: Female
  Weight: 55.34 kg

DRUGS (1)
  1. MEDROL [Suspect]
     Indication: OSTEITIS
     Route: 048

REACTIONS (3)
  - Tendon rupture [None]
  - Rotator cuff syndrome [None]
  - Tendon rupture [None]
